FAERS Safety Report 10149725 (Version 2)
Quarter: 2014Q4

REPORT INFORMATION
  Report Type: Spontaneous
  Country: FR (occurrence: FR)
  Receive Date: 20140502
  Receipt Date: 20141120
  Transmission Date: 20150528
  Serious: Yes (Other)
  Sender: FDA-Public Use
  Company Number: FR-TEVA-477256ISR

PATIENT
  Age: 47 Year
  Sex: Female

DRUGS (6)
  1. IFOSFAMIDE EG [Suspect]
     Active Substance: IFOSFAMIDE
     Indication: LYMPHOMA
     Route: 042
     Dates: start: 20131212, end: 20131213
  2. MABTHERA [Suspect]
     Active Substance: RITUXIMAB
     Indication: LYMPHOMA
     Route: 042
     Dates: start: 20131211, end: 20131211
  3. CARBOPLATINE HOSPIRA [Suspect]
     Active Substance: CARBOPLATIN
     Indication: LYMPHOMA
     Route: 042
     Dates: start: 20131212, end: 20131212
  4. ZOPHREN  8MG/4ML [Concomitant]
     Active Substance: ONDANSETRON
     Dosage: 1 DOSAGE FORMS DAILY;
     Route: 042
     Dates: start: 20131211, end: 20131216
  5. ETOPOSIDE TEVA [Suspect]
     Active Substance: ETOPOSIDE
     Indication: LYMPHOMA
     Route: 042
     Dates: start: 20131211, end: 20131213
  6. UROMITEXAN 5G/50ML [Suspect]
     Active Substance: MESNA
     Indication: LYMPHOMA
     Dosage: 12 GRAM DAILY;
     Route: 042
     Dates: start: 20131212, end: 20131213

REACTIONS (4)
  - Encephalopathy [Recovered/Resolved]
  - Clonic convulsion [Recovered/Resolved]
  - Myoclonus [Recovered/Resolved]
  - Confusional state [Recovered/Resolved]

NARRATIVE: CASE EVENT DATE: 20131213
